FAERS Safety Report 6977963-3 (Version None)
Quarter: 2010Q3

REPORT INFORMATION
  Report Type: 
  Country: None (occurrence: None)
  Receive Date: 20100913
  Receipt Date: 20100901
  Transmission Date: 20110219
  Serious: Yes (Other)
  Sender: FDA-Public Use
  Company Number: US-PFIZER INC-2010110553

PATIENT
  Sex: Female
  Weight: 79.4 kg

DRUGS (4)
  1. CHANTIX [Suspect]
     Indication: SMOKING CESSATION THERAPY
     Dosage: 1 MG, 2X/DAY
     Route: 048
     Dates: start: 20090801, end: 20090901
  2. MORPHINE [Concomitant]
     Indication: PAIN
     Dosage: 30 MG, 3X/DAY
     Route: 048
  3. FLEXERIL [Concomitant]
     Indication: MUSCLE SPASMS
     Dosage: 10 MG, AS NEEDED
     Route: 048
  4. NORCO [Concomitant]
     Indication: BREAKTHROUGH PAIN
     Dosage: [HYDROCODONE BITARTRATE 10MG]/[PARACETAMOL 325 MG]
     Route: 048

REACTIONS (5)
  - AGGRESSION [None]
  - AGITATION [None]
  - ARTERIAL OCCLUSIVE DISEASE [None]
  - DEPRESSION [None]
  - MOOD ALTERED [None]
